FAERS Safety Report 7811477-3 (Version None)
Quarter: 2011Q4

REPORT INFORMATION
  Report Type: 
  Country: None (occurrence: None)
  Receive Date: 20111013
  Receipt Date: 20111004
  Transmission Date: 20120403
  Serious: Yes (Hospitalization)
  Sender: FDA-Public Use
  Company Number: ES-JNJFOC-20111002649

PATIENT
  Age: 7 Year
  Sex: Male
  Weight: 22.5 kg

DRUGS (2)
  1. CONCERTA [Suspect]
     Indication: ATTENTION DEFICIT/HYPERACTIVITY DISORDER
     Route: 048
     Dates: start: 20110501, end: 20110901
  2. CONCERTA [Suspect]
     Route: 048
     Dates: start: 20110201, end: 20110501

REACTIONS (1)
  - TARDIVE DYSKINESIA [None]
